FAERS Safety Report 11372018 (Version 2)
Quarter: 2015Q4

REPORT INFORMATION
  Report Type: Report from Study
  Country: US (occurrence: US)
  Receive Date: 20150812
  Receipt Date: 20151104
  Transmission Date: 20160304
  Serious: Yes (Other)
  Sender: FDA-Public Use
  Company Number: US-ACTELION-A-NJ2015-122047

PATIENT
  Age: 69 Year
  Sex: Female

DRUGS (2)
  1. MACITENTAN [Suspect]
     Active Substance: MACITENTAN
     Indication: PORTOPULMONARY HYPERTENSION
     Dosage: 10 MG, QD
     Route: 048
     Dates: start: 20150708
  2. LASIX [Concomitant]
     Active Substance: FUROSEMIDE

REACTIONS (8)
  - Weight increased [Unknown]
  - Hepatic cirrhosis [Unknown]
  - Pericardial effusion [Unknown]
  - Aspiration pleural cavity [Unknown]
  - Gallbladder obstruction [Unknown]
  - Pleural effusion [Unknown]
  - Dyspnoea [Unknown]
  - Fluid retention [Unknown]
